FAERS Safety Report 9129211 (Version 1)
Quarter: 2013Q1

REPORT INFORMATION
  Report Type: Spontaneous
  Country: FR (occurrence: FR)
  Receive Date: 20130125
  Receipt Date: 20130125
  Transmission Date: 20140127
  Serious: Yes (Life-Threatening)
  Sender: FDA-Public Use
  Company Number: FR-ASTRAZENECA-2013SE04682

PATIENT
  Sex: Female
  Weight: 75 kg

DRUGS (4)
  1. LIDOCAINE WITH EPINEPHRINE [Suspect]
     Indication: EPIDURAL ANAESTHESIA
     Dosage: 340 MG IN FRACTIONATED DOSES
     Route: 008
  2. LEVOBUPIVACAINE [Suspect]
     Indication: EPIDURAL ANAESTHESIA
     Dosage: 0.08 %, 34.25 MG IN TOTAL
     Route: 008
  3. SUFENTANIL [Suspect]
     Indication: EPIDURAL ANAESTHESIA
     Dosage: 0.5 UG/ML, 20.5 UG IN TOTAL
     Route: 008
  4. CATAPRESSAN [Suspect]
     Dosage: 1 UG/ML, 138 UG IN TOTAL.
     Route: 008

REACTIONS (7)
  - Sinus arrhythmia [Recovered/Resolved]
  - Somnolence [Recovered/Resolved]
  - Nystagmus [Recovered/Resolved]
  - Nausea [Recovered/Resolved]
  - Hypotension [Recovered/Resolved]
  - Tremor [Recovered/Resolved]
  - Coma [Recovered/Resolved]
